FAERS Safety Report 24424955 (Version 2)
Quarter: 2024Q4

REPORT INFORMATION
  Report Type: Spontaneous
  Country: US (occurrence: US)
  Receive Date: 20241010
  Receipt Date: 20241025
  Transmission Date: 20250115
  Serious: No
  Sender: MILLICENT HOLDINGS
  Company Number: US-Millicent Holdings Ltd.-MILL20241192

PATIENT
  Age: 63 Year
  Sex: Female

DRUGS (6)
  1. INTRAROSA [Suspect]
     Active Substance: PRASTERONE
     Indication: Atrophic vulvovaginitis
     Dosage: 6.5 MG
     Route: 067
     Dates: start: 20241006, end: 20241012
  2. INTRAROSA [Suspect]
     Active Substance: PRASTERONE
     Indication: Vaginal prolapse
  3. INTRAROSA [Suspect]
     Active Substance: PRASTERONE
     Indication: Female sexual dysfunction
  4. VITAMIN D1 [Concomitant]
  5. VITAMINS [Concomitant]
     Active Substance: VITAMINS
  6. PROBIOTICS NOS [Concomitant]
     Active Substance: PROBIOTICS NOS

REACTIONS (3)
  - Anxiety [Recovering/Resolving]
  - Chest discomfort [Recovering/Resolving]
  - Off label use [Unknown]

NARRATIVE: CASE EVENT DATE: 20241006
